FAERS Safety Report 25075773 (Version 2)
Quarter: 2025Q1

REPORT INFORMATION
  Report Type: Spontaneous
  Country: US (occurrence: US)
  Receive Date: 20250313
  Receipt Date: 20250328
  Transmission Date: 20250409
  Serious: Yes (Other)
  Sender: BAYER HEALTHCARE PHARMACEUTICALS INC.
  Company Number: US-BAYER-2025A033540

PATIENT
  Age: 39 Year
  Sex: Male

DRUGS (2)
  1. JIVI [Suspect]
     Active Substance: DAMOCTOCOG ALFA PEGOL
     Indication: Factor VIII deficiency
     Dosage: JIVI 3000 UNITS/INFUSE 3500 UNITS BIW
     Route: 042
     Dates: start: 202103
  2. JIVI [Suspect]
     Active Substance: DAMOCTOCOG ALFA PEGOL
     Indication: Prophylaxis
     Dosage: UNK, BIW

REACTIONS (4)
  - Haemarthrosis [None]
  - Arthralgia [None]
  - Joint swelling [None]
  - Haemarthrosis [None]

NARRATIVE: CASE EVENT DATE: 20250307
